FAERS Safety Report 14070190 (Version 1)
Quarter: 2017Q4

REPORT INFORMATION
  Report Type: Spontaneous
  Country: IT (occurrence: IT)
  Receive Date: 20171010
  Receipt Date: 20171010
  Transmission Date: 20180321
  Serious: Yes (Other)
  Sender: FDA-Public Use
  Company Number: IT-ABBVIE-17P-083-2125583-00

PATIENT
  Age: 52 Year
  Sex: Male
  Weight: 70 kg

DRUGS (4)
  1. SALBUTAMOL [Suspect]
     Active Substance: ALBUTEROL
     Indication: BRONCHITIS
     Dosage: 3.5 MG
     Route: 055
     Dates: start: 20170918
  2. CLENIL [Suspect]
     Active Substance: BECLOMETHASONE DIPROPIONATE
     Indication: BRONCHITIS
     Dosage: 1.6 MG DAILY
     Route: 055
     Dates: start: 20170918
  3. AMBROTUS [Suspect]
     Active Substance: AMBROXOL HYDROCHLORIDE
     Indication: BRONCHITIS
     Dosage: 30 MG DAILY
     Route: 055
     Dates: start: 20170918, end: 20170925
  4. KLACID [Suspect]
     Active Substance: CLARITHROMYCIN
     Indication: BRONCHITIS
     Dosage: 500 MG DAILY
     Route: 048
     Dates: start: 20170918, end: 20170925

REACTIONS (17)
  - Weight decreased [None]
  - Fatigue [None]
  - Cough [Recovering/Resolving]
  - Tremor [Recovering/Resolving]
  - Headache [None]
  - Dry mouth [None]
  - Aggression [Recovering/Resolving]
  - Confusional state [None]
  - Insomnia [None]
  - Chills [Recovering/Resolving]
  - Nausea [Recovering/Resolving]
  - Dizziness [None]
  - Dysgeusia [None]
  - Night sweats [None]
  - Irritability [None]
  - Bronchitis [Recovering/Resolving]
  - Anxiety [None]

NARRATIVE: CASE EVENT DATE: 20170918
